FAERS Safety Report 26099906 (Version 1)
Quarter: 2025Q4

REPORT INFORMATION
  Report Type: Report from Study
  Country: EU (occurrence: EU)
  Receive Date: 20251128
  Receipt Date: 20251128
  Transmission Date: 20260117
  Serious: Yes (Other)
  Sender: ROCHE
  Company Number: None

PATIENT
  Age: 40 Year
  Sex: Male

DRUGS (4)
  1. VISMODEGIB [Suspect]
     Active Substance: VISMODEGIB
     Indication: Medulloblastoma
     Route: 065
     Dates: start: 202301
  2. VISMODEGIB [Suspect]
     Active Substance: VISMODEGIB
     Indication: Metastases to bone
  3. CYCLOPHOSPHAMIDE [Suspect]
     Active Substance: CYCLOPHOSPHAMIDE
     Indication: Medulloblastoma
     Dosage: 50 MG/D
     Route: 065
     Dates: start: 202401
  4. CYCLOPHOSPHAMIDE [Suspect]
     Active Substance: CYCLOPHOSPHAMIDE
     Indication: Metastases to bone

REACTIONS (3)
  - Lymphopenia [Unknown]
  - Alopecia [Unknown]
  - Myalgia [Unknown]
